FAERS Safety Report 25998584 (Version 1)
Quarter: 2025Q4

REPORT INFORMATION
  Report Type: Spontaneous
  Country: CN (occurrence: CN)
  Receive Date: 20251105
  Receipt Date: 20251105
  Transmission Date: 20260117
  Serious: Yes (Other)
  Sender: ALEXION PHARMACEUTICALS
  Company Number: CN-ASTRAZENECA-202510CHN028764CN

PATIENT
  Age: 71 Year
  Sex: Male
  Weight: 54 kg

DRUGS (1)
  1. DAPAGLIFLOZIN [Suspect]
     Active Substance: DAPAGLIFLOZIN
     Indication: Coronary artery disease
     Dosage: 10 MILLIGRAM, QD
     Dates: start: 20251013, end: 20251025

REACTIONS (5)
  - Urinary retention [Recovering/Resolving]
  - Pollakiuria [Unknown]
  - Micturition urgency [Unknown]
  - Post micturition dribble [Unknown]
  - Constipation [Unknown]

NARRATIVE: CASE EVENT DATE: 20251014
